FAERS Safety Report 17411695 (Version 2)
Quarter: 2020Q1

REPORT INFORMATION
  Report Type: Spontaneous
  Country: ES (occurrence: ES)
  Receive Date: 20200213
  Receipt Date: 20200221
  Transmission Date: 20200409
  Serious: Yes (Hospitalization, Other)
  Sender: FDA-Public Use
  Company Number: ES-SA-2020SA033787

PATIENT
  Age: 13 Year
  Sex: Female

DRUGS (2)
  1. DUPIXENT [Suspect]
     Active Substance: DUPILUMAB
     Dosage: UNK, FIRST DOSE
  2. DUPIXENT [Suspect]
     Active Substance: DUPILUMAB
     Dosage: UNK, SECOND DOSE

REACTIONS (2)
  - Oedema [Recovering/Resolving]
  - Cellulitis [Recovering/Resolving]
